FAERS Safety Report 12122303 (Version 4)
Quarter: 2018Q2

REPORT INFORMATION
  Report Type: Report from Study
  Country: AU (occurrence: AU)
  Receive Date: 20160226
  Receipt Date: 20180626
  Transmission Date: 20180711
  Serious: Yes (Other)
  Sender: FDA-Public Use
  Company Number: PHHY2016AU024492

PATIENT
  Age: 31 Year
  Sex: Female

DRUGS (5)
  1. MYFORTIC [Suspect]
     Active Substance: MYCOPHENOLATE SODIUM
     Indication: LUPUS NEPHRITIS
  2. MYFORTIC [Suspect]
     Active Substance: MYCOPHENOLATE SODIUM
     Indication: SYSTEMIC LUPUS ERYTHEMATOSUS
     Dosage: 720 MG, BID
     Route: 048
     Dates: start: 20130117, end: 20160508
  3. CALTRATE WITH VITAMIN D [Concomitant]
     Active Substance: CALCIUM CARBONATE\CHOLECALCIFEROL
     Indication: PROPHYLAXIS
     Dosage: 600MG CALCIUM 1000IU VIT. D, QD
     Route: 065
  4. PREDNISOLONE. [Concomitant]
     Active Substance: PREDNISOLONE
     Indication: IMMUNOSUPPRESSANT DRUG THERAPY
     Dosage: 25 MG, UNK
     Route: 065
     Dates: start: 20130520, end: 20130812
  5. PREDNISOLONE. [Concomitant]
     Active Substance: PREDNISOLONE
     Dosage: 12.5 MG, UNK
     Route: 065
     Dates: start: 20130812

REACTIONS (13)
  - Lupus vasculitis [Unknown]
  - Lower respiratory tract infection [Recovered/Resolved]
  - Productive cough [Unknown]
  - Vasculitis cerebral [Unknown]
  - Sputum discoloured [Unknown]
  - Dysphonia [Unknown]
  - Urine analysis abnormal [Not Recovered/Not Resolved]
  - Oropharyngeal pain [Recovered/Resolved]
  - Dyspnoea exertional [Unknown]
  - Pharyngitis [Unknown]
  - Cough [Unknown]
  - Rhinorrhoea [Unknown]
  - Oropharyngeal pain [Unknown]

NARRATIVE: CASE EVENT DATE: 20140526
